FAERS Safety Report 4580440-0 (Version None)
Quarter: 2005Q1

REPORT INFORMATION
  Report Type: 
  Country: None (occurrence: None)
  Receive Date: 20050214
  Receipt Date: 20040127
  Transmission Date: 20050727
  Serious: Yes (Other)
  Sender: FDA-Public Use
  Company Number: US-GLAXOSMITHKLINE-A0495330A

PATIENT
  Age: 26 Year
  Sex: Male
  Weight: 77.3 kg

DRUGS (6)
  1. LAMICTAL [Suspect]
     Indication: BIPOLAR DISORDER
     Dosage: 50MG PER DAY
     Route: 048
     Dates: start: 20031201
  2. PROZAC [Concomitant]
     Dosage: 80MG PER DAY
  3. WELLBUTRIN XL [Concomitant]
     Dosage: 450MG PER DAY
  4. RISPERDAL [Concomitant]
     Dosage: .5MG PER DAY
  5. KLONOPIN [Concomitant]
     Dosage: 4MG PER DAY
  6. NEURONTIN [Concomitant]
     Dosage: 1800MG PER DAY

REACTIONS (3)
  - DYSPHORIA [None]
  - PRURITUS [None]
  - RASH PUSTULAR [None]
